FAERS Safety Report 7408989-3 (Version None)
Quarter: 2011Q2

REPORT INFORMATION
  Report Type: 
  Country: None (occurrence: None)
  Receive Date: 20110412
  Receipt Date: 20110331
  Transmission Date: 20111010
  Serious: No
  Sender: FDA-Public Use
  Company Number: US-ROXANE LABORATORIES, INC.-2011-RO-00438RO

PATIENT
  Sex: Male

DRUGS (3)
  1. FLUTICASONE PROPIONATE [Suspect]
     Indication: UPPER-AIRWAY COUGH SYNDROME
     Route: 045
     Dates: end: 20110330
  2. COUMADIN [Concomitant]
  3. CASODEX [Concomitant]
     Indication: PROSTATE CANCER

REACTIONS (3)
  - DYSGEUSIA [None]
  - AGEUSIA [None]
  - WEIGHT DECREASED [None]
